FAERS Safety Report 13535587 (Version 2)
Quarter: 2017Q2

REPORT INFORMATION
  Report Type: Other
  Country: CZ (occurrence: CZ)
  Receive Date: 20170511
  Receipt Date: 20170522
  Transmission Date: 20170830
  Serious: Yes (Life-Threatening, Other)
  Sender: FDA-Public Use
  Company Number: CZ-HIKMA PHARMACEUTICALS CO. LTD-2017CZ005749

PATIENT

DRUGS (8)
  1. INDOMETACIN [Concomitant]
     Active Substance: INDOMETHACIN
     Dosage: UNK, DAILY
  2. METOJECT [Concomitant]
     Active Substance: METHOTREXATE SODIUM
     Dosage: 10 MG, UNK
  3. REMSIMA [Suspect]
     Active Substance: INFLIXIMAB
     Indication: ANKYLOSING SPONDYLITIS
     Dosage: UNK
     Route: 042
     Dates: start: 20170131, end: 20170131
  4. REMSIMA [Suspect]
     Active Substance: INFLIXIMAB
     Dosage: UNK
     Route: 042
     Dates: start: 20170224, end: 20170224
  5. MEDROL [Concomitant]
     Active Substance: METHYLPREDNISOLONE
     Indication: PREMEDICATION
     Dosage: 4 MG, UNK
     Dates: start: 20170223
  6. DITHIADEN [Concomitant]
     Active Substance: BISULEPIN
     Dosage: 1 DF IN THE EVENING A DAY BEFORE REMSIMA INFUSION
     Dates: start: 20170223
  7. SULFASALAZINE. [Concomitant]
     Active Substance: SULFASALAZINE
     Dosage: 1.5 G, DAILY
  8. MELOXICAM MYLAN [Concomitant]
     Dosage: 15 MG, DAILY

REACTIONS (8)
  - Hypotension [Recovered/Resolved]
  - Heart rate increased [Recovered/Resolved]
  - Hypersensitivity [Recovered/Resolved]
  - Conjunctival hyperaemia [Recovered/Resolved]
  - Chest discomfort [Recovered/Resolved]
  - Erythema [Recovered/Resolved]
  - Inappropriate schedule of drug administration [Unknown]
  - Dyspnoea [Recovered/Resolved]

NARRATIVE: CASE EVENT DATE: 20170224
